FAERS Safety Report 7722157-7 (Version None)
Quarter: 2011Q3

REPORT INFORMATION
  Report Type: 
  Country: None (occurrence: None)
  Receive Date: 20110831
  Receipt Date: 20110824
  Transmission Date: 20111222
  Serious: Yes (Other)
  Sender: FDA-Public Use
  Company Number: CA-JNJFOC-20110812152

PATIENT
  Sex: Female

DRUGS (2)
  1. REMICADE [Suspect]
     Indication: PRODUCT USED FOR UNKNOWN INDICATION
     Dosage: 0, 2, 6 AND THEN 8 WEEKS FOR MAINTENANCE
     Route: 042
     Dates: start: 20100201
  2. REMICADE [Suspect]
     Dosage: 0, 2, 6 AND THEN 8 WEEKS FOR MAINTENANCE
     Route: 042

REACTIONS (1)
  - FISTULA [None]
